FAERS Safety Report 12145384 (Version 3)
Quarter: 2019Q1

REPORT INFORMATION
  Report Type: Spontaneous
  Country: US (occurrence: US)
  Receive Date: 20160304
  Receipt Date: 20190201
  Transmission Date: 20190417
  Serious: No
  Sender: FDA-Public Use
  Company Number: US-PFIZER INC-2016071528

PATIENT
  Age: 58 Year
  Sex: Female

DRUGS (2)
  1. MORPHINE SULFATE. [Suspect]
     Active Substance: MORPHINE SULFATE
     Dosage: UNK
  2. IMITREX [Suspect]
     Active Substance: SUMATRIPTAN SUCCINATE

REACTIONS (3)
  - Vomiting [Unknown]
  - Drug hypersensitivity [Not Recovered/Not Resolved]
  - Nausea [Unknown]
